FAERS Safety Report 5728971-1 (Version None)
Quarter: 2008Q2

REPORT INFORMATION
  Report Type: 
  Country: None (occurrence: None)
  Receive Date: 20080506
  Receipt Date: 20080425
  Transmission Date: 20081010
  Serious: Yes (Disabling)
  Sender: FDA-Public Use
  Company Number: US-MERCK-0804USA02621

PATIENT
  Age: 5 Year
  Sex: Male
  Weight: 29 kg

DRUGS (4)
  1. SINGULAIR [Suspect]
     Indication: HYPERSENSITIVITY
     Route: 048
     Dates: start: 20030501, end: 20080401
  2. ZYRTEC [Concomitant]
     Route: 065
  3. FLONASE [Concomitant]
     Route: 065
  4. VERAMYST [Concomitant]
     Route: 065

REACTIONS (1)
  - ABNORMAL BEHAVIOUR [None]
